FAERS Safety Report 7703978-3 (Version None)
Quarter: 2011Q3

REPORT INFORMATION
  Report Type: 
  Country: None (occurrence: None)
  Receive Date: 20110823
  Receipt Date: 20110812
  Transmission Date: 20111222
  Serious: Yes (Hospitalization)
  Sender: FDA-Public Use
  Company Number: CA-JNJFOC-20110807349

PATIENT
  Sex: Male
  Weight: 71.3 kg

DRUGS (2)
  1. REMICADE [Suspect]
     Indication: CROHN'S DISEASE
     Dosage: 22ND INFUSION
     Route: 042
     Dates: start: 20110617
  2. REMICADE [Suspect]
     Route: 042

REACTIONS (2)
  - DEHYDRATION [None]
  - HAEMORRHAGE [None]
